FAERS Safety Report 7943993-8 (Version None)
Quarter: 2011Q4

REPORT INFORMATION
  Report Type: 
  Country: None (occurrence: None)
  Receive Date: 20111128
  Receipt Date: 20111018
  Transmission Date: 20120403
  Serious: Yes (Hospitalization)
  Sender: FDA-Public Use
  Company Number: US-ROCHE-792769

PATIENT
  Sex: Female

DRUGS (3)
  1. COPEGUS [Suspect]
     Indication: HEPATITIS C
     Route: 065
  2. ENBREL [Concomitant]
     Indication: PSORIASIS
  3. PEGINTERFERON ALFA-2A [Suspect]
     Indication: HEPATITIS C
     Route: 065

REACTIONS (8)
  - PSORIASIS [None]
  - ANAEMIA [None]
  - EMOTIONAL DISTRESS [None]
  - BREAST CYST [None]
  - PYREXIA [None]
  - JOINT EFFUSION [None]
  - OEDEMA PERIPHERAL [None]
  - DEPRESSION [None]
